FAERS Safety Report 4564818-7 (Version None)
Quarter: 2005Q1

REPORT INFORMATION
  Report Type: 
  Country: None (occurrence: None)
  Receive Date: 20050128
  Receipt Date: 20041018
  Transmission Date: 20050727
  Serious: Yes (Death, Hospitalization)
  Sender: FDA-Public Use
  Company Number: DE-MERCK-0410DEU00511

PATIENT
  Age: 58 Year
  Sex: Female

DRUGS (4)
  1. VIOXX [Suspect]
     Indication: POLYARTHRITIS
     Route: 048
     Dates: start: 19991226, end: 20031128
  2. VIOXX [Suspect]
     Route: 048
     Dates: start: 20031205, end: 20031206
  3. VIOXX [Suspect]
     Indication: SCIATICA
     Route: 048
     Dates: start: 19991226, end: 20031128
  4. VIOXX [Suspect]
     Route: 048
     Dates: start: 20031205, end: 20031206

REACTIONS (11)
  - ANAEMIA [None]
  - CHEST DISCOMFORT [None]
  - CONFUSIONAL STATE [None]
  - DEHYDRATION [None]
  - DEPRESSED MOOD [None]
  - DISTURBANCE IN ATTENTION [None]
  - FALL [None]
  - HYPONATRAEMIA [None]
  - SLEEP APNOEA SYNDROME [None]
  - THORACIC VERTEBRAL FRACTURE [None]
  - URINARY TRACT INFECTION [None]
